FAERS Safety Report 24786769 (Version 2)
Quarter: 2024Q4

REPORT INFORMATION
  Report Type: Spontaneous
  Country: IT (occurrence: IT)
  Receive Date: 20241230
  Receipt Date: 20241231
  Transmission Date: 20250115
  Serious: No
  Sender: ABBVIE
  Company Number: US-ABBVIE-6064674

PATIENT

DRUGS (2)
  1. CARBIDOPA [Suspect]
     Active Substance: CARBIDOPA
     Indication: Parkinson^s disease
     Route: 050
  2. CARBIDOPA [Suspect]
     Active Substance: CARBIDOPA

REACTIONS (2)
  - Change in sustained attention [Unknown]
  - Abnormal behaviour [Unknown]
